FAERS Safety Report 7277691-3 (Version None)
Quarter: 2011Q1

REPORT INFORMATION
  Report Type: 
  Country: None (occurrence: None)
  Receive Date: 20110207
  Receipt Date: 20110127
  Transmission Date: 20110831
  Serious: Yes (Hospitalization)
  Sender: FDA-Public Use
  Company Number: DE-SANOFI-AVENTIS-2011SA005221

PATIENT
  Age: 69 Year
  Sex: Female
  Weight: 66 kg

DRUGS (4)
  1. DELIX [Concomitant]
     Indication: HYPERTENSION
     Dosage: 1-0-0
     Route: 048
     Dates: start: 20100810, end: 20100831
  2. MULTAQ [Suspect]
     Dosage: 1-0-1
     Route: 048
     Dates: start: 20100810, end: 20100831
  3. ACETYLSALICYLIC ACID [Concomitant]
     Indication: ATRIAL FIBRILLATION
     Dosage: 1-0-0
     Route: 048
  4. LEVOTHYROXINE SODIUM [Concomitant]
     Indication: HYPOTHYROIDISM
     Dosage: 1-0-0
     Route: 048

REACTIONS (1)
  - HEPATITIS TOXIC [None]
